FAERS Safety Report 13168831 (Version 1)
Quarter: 2017Q1

REPORT INFORMATION
  Report Type: Spontaneous
  Country: BR (occurrence: BR)
  Receive Date: 20170131
  Receipt Date: 20170131
  Transmission Date: 20170428
  Serious: Yes (Hospitalization)
  Sender: FDA-Public Use
  Company Number: BR-B.I. PHARMACEUTICALS,INC./RIDGEFIELD-2017-BI-000642

PATIENT
  Age: 76 Year
  Sex: Female
  Weight: 65 kg

DRUGS (5)
  1. ALENIA [Concomitant]
     Active Substance: BUDESONIDE\FORMOTEROL FUMARATE
     Route: 065
     Dates: start: 20170103
  2. FUROSEMIDA [Concomitant]
     Active Substance: FUROSEMIDE
     Indication: DIURETIC THERAPY
     Route: 048
  3. ESPIROLACTONA [Concomitant]
     Indication: HYPERTENSION
     Route: 048
     Dates: start: 2014
  4. SPIRIVA RESPIMAT [Suspect]
     Active Substance: TIOTROPIUM BROMIDE
     Indication: RESPIRATORY DISORDER
     Route: 065
     Dates: start: 2014, end: 20170103
  5. ALENIA [Concomitant]
     Active Substance: BUDESONIDE\FORMOTEROL FUMARATE
     Indication: RESPIRATORY DISORDER
     Route: 065
     Dates: end: 20170103

REACTIONS (5)
  - Dysphonia [Not Recovered/Not Resolved]
  - Dysgeusia [Recovered/Resolved]
  - Cough [Recovered/Resolved]
  - Pharyngeal oedema [Recovered/Resolved]
  - Incorrect product storage [Unknown]

NARRATIVE: CASE EVENT DATE: 20170103
